FAERS Safety Report 8677503 (Version 4)
Quarter: 2012Q4

REPORT INFORMATION
  Report Type: 
  Country: GB (occurrence: GB)
  Receive Date: 20120723
  Receipt Date: 20121108
  Transmission Date: 20130627
  Serious: Yes (Other)
  Sender: FDA-Public Use
  Company Number: PHFR2012GB004078

PATIENT
  Age: 76 Year
  Sex: Female
  Weight: 72.73 kg

DRUGS (5)
  1. DIOVAN [Suspect]
     Indication: HYPERTENSION
     Dosage: 40 mg, UNK
  2. DIOVAN [Suspect]
     Dosage: 40 mg, UNK
     Dates: start: 20120526
  3. VALSARTAN [Suspect]
     Dates: start: 201202
  4. CO-CODAMOL [Concomitant]
     Dosage: 1 DF, PRN
     Route: 048
     Dates: start: 20120308
  5. CANDESARTAN [Concomitant]

REACTIONS (5)
  - Fall [Recovered/Resolved]
  - Contusion [Unknown]
  - Oedema peripheral [Unknown]
  - Blood pressure decreased [Recovered/Resolved]
  - Dizziness [Recovered/Resolved]
